FAERS Safety Report 14822884 (Version 1)
Quarter: 2018Q2

REPORT INFORMATION
  Report Type: Spontaneous
  Country: JP (occurrence: JP)
  Receive Date: 20180427
  Receipt Date: 20180427
  Transmission Date: 20180711
  Serious: Yes (Hospitalization, Other)
  Sender: FDA-Public Use
  Company Number: JP-PFIZER INC-2018163442

PATIENT
  Age: 67 Year
  Sex: Male

DRUGS (1)
  1. AXITINIB [Suspect]
     Active Substance: AXITINIB
     Dosage: UNK

REACTIONS (6)
  - Urinary tract infection [Unknown]
  - Peritonitis [Unknown]
  - Large intestine perforation [Unknown]
  - Abdominal abscess [Unknown]
  - Dysstasia [Unknown]
  - Enterovesical fistula [Unknown]
